FAERS Safety Report 7831581-3 (Version None)
Quarter: 2011Q4

REPORT INFORMATION
  Report Type: 
  Country: None (occurrence: None)
  Receive Date: 20111021
  Receipt Date: 20111017
  Transmission Date: 20120403
  Serious: Yes (Hospitalization, Other)
  Sender: FDA-Public Use
  Company Number: US-TEVA-305408USA

PATIENT
  Sex: Female

DRUGS (1)
  1. COPAXONE [Suspect]
     Indication: MULTIPLE SCLEROSIS
     Route: 058
     Dates: start: 20100101, end: 20110801

REACTIONS (8)
  - GAIT DISTURBANCE [None]
  - MULTIPLE SCLEROSIS RELAPSE [None]
  - ARTHRALGIA [None]
  - EYE DISORDER [None]
  - DYSPHAGIA [None]
  - BLADDER DISORDER [None]
  - BLOOD GLUCOSE INCREASED [None]
  - DEMYELINATION [None]
